FAERS Safety Report 21308874 (Version 12)
Quarter: 2023Q2

REPORT INFORMATION
  Report Type: Report from Study
  Country: US (occurrence: US)
  Receive Date: 20220908
  Receipt Date: 20230607
  Transmission Date: 20230722
  Serious: Yes (Death, Life-Threatening, Hospitalization, Other)
  Sender: FDA-Public Use
  Company Number: US-NOVARTISPH-NVSC2022US201138

PATIENT
  Age: 69 Year
  Sex: Male
  Weight: 75.1 kg

DRUGS (66)
  1. ILARIS [Suspect]
     Active Substance: CANAKINUMAB
     Indication: Pancreatic carcinoma metastatic
     Dosage: 250 MG, DAY 1 OF 28 DAY CYCLE (STRENGTH: 250 MG)
     Route: 058
     Dates: start: 20220802
  2. ILARIS [Suspect]
     Active Substance: CANAKINUMAB
     Dosage: 1000 MG/M2
     Route: 058
     Dates: start: 20220816
  3. GEMCITABINE [Suspect]
     Active Substance: GEMCITABINE
     Indication: Pancreatic carcinoma metastatic
     Dosage: 1000 MG/M2, DAY 1,8,15 OF 28 DAY CYCLE
     Route: 042
     Dates: start: 20220802
  4. GEMCITABINE [Suspect]
     Active Substance: GEMCITABINE
     Dosage: 1000 MG/M2
     Route: 042
     Dates: start: 20220816
  5. ROSUVASTATIN [Concomitant]
     Active Substance: ROSUVASTATIN
     Indication: Hyperlipidaemia
     Dosage: 20 MG, QD
     Route: 048
     Dates: start: 202104
  6. TRESIBA [Concomitant]
     Active Substance: INSULIN DEGLUDEC
     Indication: Type 2 diabetes mellitus
     Dosage: 25 DOSAGE FORM, QD
     Route: 058
     Dates: start: 20220522
  7. ACETAMINOPHEN [Concomitant]
     Active Substance: ACETAMINOPHEN
     Indication: Abdominal pain
     Dosage: 325 MG, PRN
     Route: 048
     Dates: start: 202205
  8. OXYCODONE [Concomitant]
     Active Substance: OXYCODONE
     Indication: Abdominal pain
     Dosage: 5 MG, PRN
     Route: 048
     Dates: start: 20220706
  9. OXYCODONE [Concomitant]
     Active Substance: OXYCODONE
     Dosage: 10 MG, PRN
     Route: 048
     Dates: start: 20220907
  10. CREON [Concomitant]
     Active Substance: PANCRELIPASE AMYLASE\PANCRELIPASE LIPASE\PANCRELIPASE PROTEASE
     Indication: Pancreatic failure
     Dosage: 36000 IU, TID
     Route: 048
     Dates: start: 20220706
  11. ZOLPIDEM [Concomitant]
     Active Substance: ZOLPIDEM TARTRATE
     Indication: Sleep disorder
     Dosage: 6.25 MG, QD
     Route: 048
     Dates: start: 20220719
  12. HYDROMORPHONE [Concomitant]
     Active Substance: HYDROMORPHONE
     Indication: Abdominal pain
     Dosage: 4 MG, PRN
     Route: 048
     Dates: start: 20220719
  13. HYDROMORPHONE [Concomitant]
     Active Substance: HYDROMORPHONE
     Dosage: 2 MG, ONCE/SINGLE
     Route: 042
     Dates: start: 20220906, end: 20220906
  14. HYDROMORPHONE [Concomitant]
     Active Substance: HYDROMORPHONE
     Dosage: 0.5 MG, ONCE/SINGLE
     Route: 042
     Dates: start: 20220913
  15. PERCOCET [Concomitant]
     Active Substance: ACETAMINOPHEN\OXYCODONE HYDROCHLORIDE
     Indication: Abdominal pain
     Dosage: 1 DOSAGE FORM, PRN
     Route: 048
     Dates: start: 20220725
  16. PROPOFOL [Concomitant]
     Active Substance: PROPOFOL
     Indication: Anaesthesia
     Dosage: 50 MG, ONCE/SINGLE
     Route: 042
     Dates: start: 20220727, end: 20220727
  17. PROPOFOL [Concomitant]
     Active Substance: PROPOFOL
     Dosage: 20 MG, PRN
     Route: 042
     Dates: start: 20220913, end: 20220913
  18. PROPOFOL [Concomitant]
     Active Substance: PROPOFOL
     Dosage: 40 MG, PRN
     Route: 042
  19. PROPOFOL [Concomitant]
     Active Substance: PROPOFOL
     Dosage: 50 MG, PRN
     Route: 042
  20. PROPOFOL [Concomitant]
     Active Substance: PROPOFOL
     Dosage: 70 MG, PRN
     Route: 042
  21. PROPOFOL [Concomitant]
     Active Substance: PROPOFOL
     Dosage: 1000 +160 MG, ONCE/SINGLE
     Route: 042
     Dates: start: 20221024, end: 20221024
  22. FENTANYL [Concomitant]
     Active Substance: FENTANYL
     Indication: Abdominal pain
     Dosage: 25 UG, PRN
     Route: 042
     Dates: start: 20220727, end: 20220727
  23. ONDANSETRON [Concomitant]
     Active Substance: ONDANSETRON
     Indication: Prophylaxis of nausea and vomiting
     Dosage: 8 MG, PRN
     Route: 048
     Dates: start: 20220802
  24. ONDANSETRON [Concomitant]
     Active Substance: ONDANSETRON
     Indication: Anaesthesia
     Dosage: 4 MG, ONCE/SINGLE
     Route: 065
     Dates: start: 20220913
  25. ONDANSETRON [Concomitant]
     Active Substance: ONDANSETRON
     Dosage: 4 MG, ONCE/SINGLE
     Route: 042
     Dates: start: 20221024, end: 20221024
  26. PROCHLORPERAZINE [Concomitant]
     Active Substance: PROCHLORPERAZINE
     Indication: Prophylaxis of nausea and vomiting
     Dosage: 10 MG, PRN
     Route: 048
     Dates: start: 20220802
  27. MILK OF MAGNESIA [Concomitant]
     Active Substance: MAGNESIUM HYDROXIDE
     Indication: Constipation
     Dosage: 400 MG, PRN
     Route: 048
     Dates: start: 20220810, end: 20220816
  28. MIRALAX [Concomitant]
     Active Substance: POLYETHYLENE GLYCOL 3350
     Indication: Constipation
     Dosage: 17 G, PRN
     Route: 048
     Dates: start: 20220816
  29. PALONOSETRON [Concomitant]
     Active Substance: PALONOSETRON
     Indication: Prophylaxis of nausea and vomiting
     Dosage: 0.25 MG, PRN
     Route: 042
     Dates: start: 20220816
  30. LORAZEPAM [Concomitant]
     Active Substance: LORAZEPAM
     Indication: Anxiety
     Dosage: 1 MG, QD
     Route: 048
     Dates: start: 20220816
  31. OMEPRAZOLE [Concomitant]
     Active Substance: OMEPRAZOLE
     Indication: Gastrooesophageal reflux disease
     Dosage: 20 MG, QD
     Route: 048
     Dates: start: 20220816
  32. HEPARIN [Concomitant]
     Active Substance: HEPARIN SODIUM
     Indication: Portal vein thrombosis
     Dosage: UNK
     Route: 042
     Dates: start: 20220820, end: 20220826
  33. ENOXAPARIN [Concomitant]
     Active Substance: ENOXAPARIN
     Indication: Portal vein thrombosis
     Dosage: 90 MG, BID
     Route: 058
     Dates: start: 20220826
  34. ENOXAPARIN [Concomitant]
     Active Substance: ENOXAPARIN
     Dosage: 80 MG, ONCE/SINGLE
     Route: 058
     Dates: start: 20221023, end: 20221023
  35. FUROSEMIDE [Concomitant]
     Active Substance: FUROSEMIDE
     Indication: Oedema peripheral
     Dosage: UNK
     Route: 048
     Dates: start: 20220830, end: 20220906
  36. NYSTATIN [Concomitant]
     Active Substance: NYSTATIN
     Indication: Candida infection
     Dosage: 5 ML, QD
     Route: 042
     Dates: start: 20220906
  37. DEXAMETHASONE [Concomitant]
     Active Substance: DEXAMETHASONE
     Indication: Anaesthesia
     Dosage: 4 MG, ONCE/SINGLE
     Route: 042
     Dates: start: 20220913, end: 20220913
  38. DEXAMETHASONE [Concomitant]
     Active Substance: DEXAMETHASONE
     Dosage: 4 MG, ONCE/SINGLE
     Route: 042
     Dates: start: 20221024, end: 20221024
  39. EPHEDRINE [Concomitant]
     Active Substance: EPHEDRINE
     Indication: Anaesthesia
     Dosage: 5 MG, PRN
     Route: 042
     Dates: start: 20220913, end: 20220913
  40. PHENYLEPHRINE [Concomitant]
     Active Substance: PHENYLEPHRINE HYDROCHLORIDE
     Indication: Anaesthesia
     Dosage: 100 UG, PRN
     Route: 042
     Dates: start: 20220913
  41. PHENYLEPHRINE [Concomitant]
     Active Substance: PHENYLEPHRINE HYDROCHLORIDE
     Dosage: 200 UG, PRN
     Route: 042
     Dates: end: 20220913
  42. PHENYLEPHRINE [Concomitant]
     Active Substance: PHENYLEPHRINE HYDROCHLORIDE
     Dosage: 20 MG, ONCE/SINGLE
     Route: 042
     Dates: start: 20221024, end: 20221024
  43. ROCURONIUM [Concomitant]
     Active Substance: ROCURONIUM BROMIDE
     Indication: Anaesthesia
     Dosage: 5 MG, ONCE/SINGLE
     Route: 042
     Dates: start: 20220913, end: 20220913
  44. ROCURONIUM [Concomitant]
     Active Substance: ROCURONIUM BROMIDE
     Dosage: 10 MG, PRN
     Route: 042
  45. ROCURONIUM [Concomitant]
     Active Substance: ROCURONIUM BROMIDE
     Dosage: 30 MG, ONCE/SINGLE
     Route: 042
     Dates: start: 20221024, end: 20221024
  46. SUCCINYLCHOLINE [Concomitant]
     Active Substance: SUCCINYLCHOLINE
     Indication: Anaesthesia
     Dosage: 120 MG, ONCE/SINGLE
     Route: 042
     Dates: start: 20220913, end: 20220913
  47. SUCCINYLCHOLINE [Concomitant]
     Active Substance: SUCCINYLCHOLINE
     Dosage: 200 MG, ONCE/SINGLE
     Route: 042
     Dates: start: 20221023, end: 20221023
  48. SUGAMMADEX [Concomitant]
     Active Substance: SUGAMMADEX
     Indication: Anaesthesia
     Dosage: 200 MG, ONCE/SINGLE
     Route: 042
     Dates: start: 20220913, end: 20220913
  49. SUGAMMADEX [Concomitant]
     Active Substance: SUGAMMADEX
     Dosage: 200 MG, ONCE/SINGLE
     Route: 042
     Dates: start: 20221023, end: 20221023
  50. CALCIUM CARBONATE [Concomitant]
     Active Substance: CALCIUM CARBONATE
     Indication: Nausea
     Dosage: 500 MG, PRN
     Route: 048
     Dates: start: 20220913, end: 20220914
  51. FUROSEMIDE [Concomitant]
     Active Substance: FUROSEMIDE
     Indication: Portal hypertension
     Dosage: 20 MG, QD
     Route: 048
     Dates: start: 20220914, end: 20221101
  52. FUROSEMIDE [Concomitant]
     Active Substance: FUROSEMIDE
     Indication: Pancreatic disorder
  53. SPIRONOLACTONE [Concomitant]
     Active Substance: SPIRONOLACTONE
     Indication: Portal hypertension
     Dosage: 50 MG, QD
     Route: 048
     Dates: start: 20220914
  54. MIRTAZAPINE [Concomitant]
     Active Substance: MIRTAZAPINE
     Indication: Depression
     Dosage: 15 MG, QD
     Route: 048
     Dates: start: 20220915
  55. SENNA [Concomitant]
     Active Substance: SENNA LEAF\SENNOSIDES\SENNOSIDES A AND B
     Indication: Constipation
     Dosage: 17.2 MG, QD
     Route: 048
     Dates: start: 20220915
  56. MEGESTROL [Concomitant]
     Active Substance: MEGESTROL
     Indication: Decreased appetite
     Dosage: 400 MG, BID
     Route: 048
     Dates: start: 20220929
  57. BUPROPION [Concomitant]
     Active Substance: BUPROPION
     Indication: Depression
     Dosage: 150 MG, QD
     Route: 048
     Dates: start: 20221101
  58. HEPARIN SODIUM [Concomitant]
     Active Substance: HEPARIN SODIUM
     Indication: Product used for unknown indication
     Dosage: UNK
     Route: 065
     Dates: start: 20221026, end: 20221026
  59. LACTATED RINGERS SOLUTION [Concomitant]
     Active Substance: CALCIUM CHLORIDE\POTASSIUM CHLORIDE\SODIUM CHLORIDE\SODIUM LACTATE
     Indication: Anaesthesia
     Dosage: 1000 ML, ONCE/SINGLE
     Route: 042
     Dates: start: 20221024, end: 20221024
  60. LIDOCAINE [Concomitant]
     Active Substance: LIDOCAINE
     Indication: Anaesthesia
     Dosage: 50 MG, ONCE/SINGLE
     Route: 042
     Dates: start: 20221024, end: 20221024
  61. LEVOFLOXACIN [Concomitant]
     Active Substance: LEVOFLOXACIN
     Indication: Anaesthesia
     Dosage: 500 MG, ONCE/SINGLE
     Route: 048
     Dates: start: 20221024, end: 20221024
  62. GLUCAGON [Concomitant]
     Active Substance: GLUCAGON
     Indication: Anaesthesia
     Dosage: 1 MG, ONCE/SINGLE
     Route: 042
     Dates: start: 20221024, end: 20221024
  63. INSULIN LISPRO [Concomitant]
     Active Substance: INSULIN LISPRO
     Indication: Type 2 diabetes mellitus
     Dosage: 2 UNIT, ONCE/SINGLE
     Route: 058
     Dates: start: 20221023, end: 20221023
  64. SPIRONOLACTONE [Concomitant]
     Active Substance: SPIRONOLACTONE
     Indication: Pancreatic disorder
     Dosage: 50 MG, QD
     Route: 048
     Dates: start: 20220914, end: 20221101
  65. NALOXEGOL [Concomitant]
     Active Substance: NALOXEGOL
     Indication: Constipation prophylaxis
     Dosage: 25 MG, QD
     Route: 048
     Dates: start: 20221022, end: 20221026
  66. MIRTAZAPINE [Concomitant]
     Active Substance: MIRTAZAPINE
     Indication: Depression
     Dosage: 15 MG, QD
     Route: 048
     Dates: start: 20220915

REACTIONS (21)
  - Death [Fatal]
  - Sepsis [Not Recovered/Not Resolved]
  - Febrile neutropenia [Recovered/Resolved]
  - Septic shock [Recovered/Resolved]
  - Pain [Recovering/Resolving]
  - Perihepatic abscess [Not Recovered/Not Resolved]
  - Biliary obstruction [Recovered/Resolved]
  - Hypophagia [Unknown]
  - Abdominal pain upper [Not Recovered/Not Resolved]
  - Lethargy [Unknown]
  - Asthenia [Unknown]
  - Liver abscess [Unknown]
  - Bacteraemia [Unknown]
  - Thrombosis [Unknown]
  - Splenic vein occlusion [Unknown]
  - Ascites [Unknown]
  - Pneumobilia [Unknown]
  - Cholecystitis [Unknown]
  - Decreased appetite [Unknown]
  - Early satiety [Unknown]
  - Fatigue [Unknown]

NARRATIVE: CASE EVENT DATE: 20220820
